FAERS Safety Report 9095072 (Version 1)
Quarter: 2013Q1

REPORT INFORMATION
  Report Type: Spontaneous
  Country: DE (occurrence: DE)
  Receive Date: 20130201
  Receipt Date: 20130201
  Transmission Date: 20140127
  Serious: Yes (Other)
  Sender: FDA-Public Use
  Company Number: DE-BAUSCH-BL-2013-000325

PATIENT
  Age: 80 Year
  Sex: Female

DRUGS (5)
  1. MYDRUM AUGENTROPFEN [Suspect]
     Indication: MYDRIASIS
     Route: 047
     Dates: start: 201301, end: 201301
  2. RAMIPRIL [Concomitant]
     Indication: HYPERTENSION
  3. FELODIPIN [Concomitant]
     Indication: HYPERTENSION
  4. XALATAN [Concomitant]
     Indication: PRODUCT USED FOR UNKNOWN INDICATION
  5. ALENDRONIC ACID [Concomitant]
     Indication: OSTEOPOROSIS

REACTIONS (2)
  - Blood pressure increased [Recovered/Resolved]
  - Discomfort [Recovered/Resolved]
